FAERS Safety Report 24811625 (Version 2)
Quarter: 2025Q1

REPORT INFORMATION
  Report Type: Spontaneous
  Country: US (occurrence: US)
  Receive Date: 20250106
  Receipt Date: 20250217
  Transmission Date: 20250409
  Serious: Yes (Other)
  Sender: ALEXION PHARMACEUTICALS
  Company Number: US-ASTRAZENECA-202501USA001391US

PATIENT
  Age: 87 Year
  Weight: 59.2 kg

DRUGS (4)
  1. FASLODEX [Suspect]
     Active Substance: FULVESTRANT
     Route: 065
  2. FASLODEX [Suspect]
     Active Substance: FULVESTRANT
  3. IBRANCE [Suspect]
     Active Substance: PALBOCICLIB
     Route: 065
  4. PALBOCICLIB [Suspect]
     Active Substance: PALBOCICLIB
     Route: 065

REACTIONS (7)
  - Breast cancer [Unknown]
  - Neutropenia [Unknown]
  - Dementia [Unknown]
  - Dementia Alzheimer^s type [Unknown]
  - Delirium [Unknown]
  - Fatigue [Unknown]
  - Product distribution issue [Unknown]
